FAERS Safety Report 21068792 (Version 1)
Quarter: 2022Q3

REPORT INFORMATION
  Report Type: Spontaneous
  Country: JP (occurrence: JP)
  Receive Date: 20220712
  Receipt Date: 20220712
  Transmission Date: 20221027
  Serious: Yes (Other)
  Sender: FDA-Public Use
  Company Number: JP-BEH-2022147409

PATIENT

DRUGS (2)
  1. PRIVIGEN [Suspect]
     Active Substance: HUMAN IMMUNOGLOBULIN G
     Indication: Neonatal alloimmune thrombocytopenia
     Dosage: UNK
     Route: 064
  2. PRIVIGEN [Suspect]
     Active Substance: HUMAN IMMUNOGLOBULIN G
     Dosage: UNK
     Route: 065

REACTIONS (7)
  - Premature baby [Unknown]
  - Foetal exposure during pregnancy [Unknown]
  - Neonatal alloimmune thrombocytopenia [Unknown]
  - Foetal exposure during pregnancy [Unknown]
  - No adverse event [Unknown]
  - Off label use [Unknown]
  - Platelet count decreased [Unknown]
